FAERS Safety Report 9398904 (Version 1)
Quarter: 2013Q3

REPORT INFORMATION
  Report Type: Spontaneous
  Country: CN (occurrence: CN)
  Receive Date: 20130712
  Receipt Date: 20130712
  Transmission Date: 20140515
  Serious: Yes (Other)
  Sender: FDA-Public Use
  Company Number: CN-BAXTER-2013BAX026379

PATIENT
  Sex: Male
  Weight: 85 kg

DRUGS (2)
  1. 0.9% SODIUM CHLORIDE INJECTION [Suspect]
     Indication: INFECTION
     Route: 041
     Dates: start: 20121007, end: 20121007
  2. MEROPENEM [Suspect]
     Indication: INFECTION
     Route: 041
     Dates: start: 20121007, end: 20121007

REACTIONS (1)
  - Anaphylactic reaction [Recovered/Resolved]
